FAERS Safety Report 4817593-2 (Version None)
Quarter: 2005Q4

REPORT INFORMATION
  Report Type: 
  Country: None (occurrence: None)
  Receive Date: 20051031
  Receipt Date: 20051017
  Transmission Date: 20060501
  Serious: Yes (Hospitalization)
  Sender: FDA-Public Use
  Company Number: DEU-2005-0001485

PATIENT
  Age: 49 Year
  Sex: Female

DRUGS (1)
  1. PALLADONE [Suspect]
     Indication: PAIN
     Dosage: 12 MG, BID, ORAL
     Route: 048

REACTIONS (2)
  - FALL [None]
  - LOSS OF CONSCIOUSNESS [None]
